FAERS Safety Report 23331825 (Version 1)
Quarter: 2023Q4

REPORT INFORMATION
  Report Type: Spontaneous
  Country: None (occurrence: US)
  Receive Date: 20231222
  Receipt Date: 20231222
  Transmission Date: 20240109
  Serious: Yes (Other)
  Sender: FDA-Public Use
  Company Number: US-Medline Industries, LP-2149645

PATIENT
  Sex: Female

DRUGS (1)
  1. ACTIVICE [Suspect]
     Active Substance: MENTHOL
     Route: 061

REACTIONS (1)
  - Application site burn [Recovering/Resolving]
